FAERS Safety Report 11879465 (Version 1)
Quarter: 2015Q4

REPORT INFORMATION
  Report Type: Spontaneous
  Country: CN (occurrence: CN)
  Receive Date: 20151230
  Receipt Date: 20151230
  Transmission Date: 20160305
  Serious: Yes (Death, Other)
  Sender: FDA-Public Use
  Company Number: CN-ASTELLAS-2015US048722

PATIENT
  Age: 68 Year
  Sex: Male

DRUGS (2)
  1. MICAFUNGIN [Suspect]
     Active Substance: MICAFUNGIN
     Dosage: 2 DF (INJECTION), ONCE DAILY
     Route: 042
     Dates: start: 20151208, end: 20151214
  2. MICAFUNGIN [Suspect]
     Active Substance: MICAFUNGIN
     Indication: FUNGAL INFECTION
     Dosage: 3 DF (INJECTION), ONCE DAILY
     Route: 042
     Dates: start: 20151204, end: 20151207

REACTIONS (1)
  - Neoplasm progression [Fatal]
